FAERS Safety Report 24553720 (Version 1)
Quarter: 2024Q4

REPORT INFORMATION
  Report Type: Spontaneous
  Country: US (occurrence: US)
  Receive Date: 20241028
  Receipt Date: 20241028
  Transmission Date: 20250115
  Serious: No
  Sender: ROCHE
  Company Number: US-ROCHE-3541730

PATIENT
  Age: 16 Year
  Sex: Male
  Weight: 61.8 kg

DRUGS (2)
  1. NUTROPIN AQ [Suspect]
     Active Substance: SOMATROPIN
     Indication: Short stature
     Dosage: NUSPIN10ML/2ML, HE WAS GIVEN 2 DOSES A DAY EACH 2MG PLUS 2MG
     Route: 058
  2. NUTROPIN AQ [Suspect]
     Active Substance: SOMATROPIN
     Indication: Growth hormone deficiency

REACTIONS (2)
  - Incorrect dose administered [Unknown]
  - No adverse event [Unknown]
